FAERS Safety Report 8508208-0 (Version None)
Quarter: 2012Q2

REPORT INFORMATION
  Report Type: 
  Country: None (occurrence: None)
  Receive Date: 20120405
  Receipt Date: 20090501
  Transmission Date: 20120825
  Serious: Yes (Other)
  Sender: FDA-Public Use
  Company Number: PHEH2009US03846

PATIENT
  Age: 86 Year
  Sex: Female
  Weight: 69.8 kg

DRUGS (4)
  1. LISINOPRIL [Concomitant]
  2. RECLAST [Suspect]
     Indication: OSTEOPOROSIS POSTMENOPAUSAL
     Dosage: 5 MG, ONCE YEARLY, IV INFUSION
     Route: 042
     Dates: start: 20081027, end: 20081027
  3. CALCIUM WITH VITAMIN D (CALCIUM PHOSPHATE, CALCIUM SODIUM LACTATE, ERG [Concomitant]
  4. NASONEX [Concomitant]

REACTIONS (7)
  - NAUSEA [None]
  - MYALGIA [None]
  - NECK PAIN [None]
  - C-REACTIVE PROTEIN INCREASED [None]
  - BONE PAIN [None]
  - BLOOD CALCIUM DECREASED [None]
  - BLOOD PHOSPHORUS DECREASED [None]
